FAERS Safety Report 23783709 (Version 1)
Quarter: 2024Q2

REPORT INFORMATION
  Report Type: Report from Study
  Country: CO (occurrence: CO)
  Receive Date: 20240425
  Receipt Date: 20240425
  Transmission Date: 20240716
  Serious: Yes (Hospitalization)
  Sender: FDA-Public Use
  Company Number: CO-ASTELLAS-2024US010502

PATIENT
  Age: 78 Year
  Sex: Male

DRUGS (1)
  1. ENZALUTAMIDE [Suspect]
     Active Substance: ENZALUTAMIDE
     Indication: Hormone-refractory prostate cancer
     Route: 048
     Dates: start: 20240304

REACTIONS (4)
  - Hyperhidrosis [Unknown]
  - General physical health deterioration [Unknown]
  - Inflammation [Unknown]
  - Feeling cold [Unknown]

NARRATIVE: CASE EVENT DATE: 20240401
